FAERS Safety Report 8432785-1 (Version None)
Quarter: 2012Q2

REPORT INFORMATION
  Report Type: 
  Country: None (occurrence: None)
  Receive Date: 20120613
  Receipt Date: 20120608
  Transmission Date: 20120825
  Serious: No
  Sender: FDA-Public Use
  Company Number: US-PFIZER INC-2012138612

PATIENT
  Sex: Male
  Weight: 87 kg

DRUGS (2)
  1. NORVASC [Concomitant]
     Dosage: UNK
  2. ACCUPRIL [Suspect]
     Indication: HYPERTENSION
     Dosage: 20 MG, 2X/DAY
     Route: 048
     Dates: start: 20120301, end: 20120101

REACTIONS (2)
  - WEIGHT DECREASED [None]
  - COUGH [None]
